FAERS Safety Report 9337154 (Version 2)
Quarter: 2013Q3

REPORT INFORMATION
  Report Type: Spontaneous
  Country: US (occurrence: US)
  Receive Date: 20130607
  Receipt Date: 20130805
  Transmission Date: 20140515
  Serious: No
  Sender: FDA-Public Use
  Company Number: US-PFIZER INC-2013170086

PATIENT
  Age: 45 Year
  Sex: Female

DRUGS (1)
  1. LYRICA [Suspect]
     Indication: TRIGEMINAL NEURALGIA
     Dosage: 50 MG, 1X/DAY (NIGHTLY)
     Route: 048
     Dates: start: 20130604, end: 20130610

REACTIONS (5)
  - Anxiety [Recovered/Resolved]
  - Depression [Recovered/Resolved]
  - Lethargy [Recovered/Resolved]
  - Thinking abnormal [Recovered/Resolved]
  - Abnormal behaviour [Recovered/Resolved]
